FAERS Safety Report 6808752-8 (Version None)
Quarter: 2010Q2

REPORT INFORMATION
  Report Type: 
  Country: None (occurrence: None)
  Receive Date: 20100629
  Receipt Date: 20090731
  Transmission Date: 20101027
  Serious: No
  Sender: FDA-Public Use
  Company Number: US-PFIZER INC-2009251347

PATIENT
  Age: 55 Year
  Sex: Male
  Weight: 72.6 kg

DRUGS (1)
  1. VIAGRA [Suspect]
     Indication: ERECTILE DYSFUNCTION
     Dosage: 25 MG, UNK
     Route: 048

REACTIONS (2)
  - ERECTILE DYSFUNCTION [None]
  - TESTICULAR PAIN [None]
